FAERS Safety Report 15691376 (Version 1)
Quarter: 2018Q4

REPORT INFORMATION
  Report Type: Spontaneous
  Country: US (occurrence: US)
  Receive Date: 20181205
  Receipt Date: 20181205
  Transmission Date: 20190205
  Serious: No
  Sender: FDA-Public Use
  Company Number: US-SA-2018SA332276

PATIENT
  Age: 38 Year
  Sex: Female

DRUGS (1)
  1. CEREZYME [Suspect]
     Active Substance: IMIGLUCERASE
     Dosage: 4800 UNK, Q2 WEEKS
     Route: 041
     Dates: start: 201603

REACTIONS (1)
  - Product dose omission [Unknown]
